FAERS Safety Report 6084636-0 (Version None)
Quarter: 2009Q1

REPORT INFORMATION
  Report Type: 
  Country: None (occurrence: None)
  Receive Date: 20090211
  Receipt Date: 20080919
  Transmission Date: 20090719
  Serious: Yes (Other)
  Sender: FDA-Public Use
  Company Number: US-WYE-H06057108

PATIENT
  Age: 61 Year
  Sex: Female
  Weight: 71.73 kg

DRUGS (7)
  1. EFFEXOR [Suspect]
     Dosage: TAPERED OFF ; 150 MG 1X PER 1 DAY
     Dates: start: 20070414, end: 20070101
  2. EFFEXOR [Suspect]
     Dosage: TAPERED OFF ; 150 MG 1X PER 1 DAY
     Dates: end: 20070413
  3. AMLODIPINE [Concomitant]
  4. LABETALOL HCL [Concomitant]
  5. TORSEMIDE (TORSAMIDE) [Concomitant]
  6. ATENOLOL [Concomitant]
  7. ALPRAZOLAM [Concomitant]

REACTIONS (4)
  - CHEST DISCOMFORT [None]
  - CONDITION AGGRAVATED [None]
  - ELECTROCARDIOGRAM QT PROLONGED [None]
  - HYPERTENSION [None]
